FAERS Safety Report 22750508 (Version 7)
Quarter: 2023Q4

REPORT INFORMATION
  Report Type: Report from Study
  Country: US (occurrence: US)
  Receive Date: 20230726
  Receipt Date: 20231205
  Transmission Date: 20240110
  Serious: No
  Sender: FDA-Public Use
  Company Number: US-002147023-NVSC2023US163721

PATIENT
  Sex: Female

DRUGS (2)
  1. KESIMPTA [Suspect]
     Active Substance: OFATUMUMAB
     Indication: Product used for unknown indication
     Dosage: UNK
     Route: 065
  2. HERBALS [Concomitant]
     Active Substance: HERBALS
     Indication: Product used for unknown indication
     Dosage: UNK
     Route: 065

REACTIONS (10)
  - Somnolence [Unknown]
  - Burning sensation [Unknown]
  - Pain of skin [Unknown]
  - Fatigue [Unknown]
  - Pruritus [Unknown]
  - Injection site extravasation [Unknown]
  - Paraesthesia [Recovering/Resolving]
  - Nasopharyngitis [Unknown]
  - Stress [Unknown]
  - Incorrect dose administered [Unknown]
